FAERS Safety Report 8618522-6 (Version None)
Quarter: 2012Q3

REPORT INFORMATION
  Report Type: 
  Country: None (occurrence: None)
  Receive Date: 20120824
  Receipt Date: 20120813
  Transmission Date: 20120928
  Serious: Yes (Other)
  Sender: FDA-Public Use
  Company Number: US-ACCORD-014470

PATIENT
  Weight: 2.46 kg

DRUGS (3)
  1. CYTOXAN [Suspect]
     Indication: BREAST CANCER STAGE III
     Route: 064
  2. PACLITAXEL [Suspect]
     Indication: BREAST CANCER STAGE III
     Route: 064
  3. ADRIAMYCIN PFS [Suspect]
     Indication: BREAST CANCER STAGE III
     Route: 064

REACTIONS (2)
  - FOETAL EXPOSURE DURING PREGNANCY [None]
  - FOETAL GROWTH RESTRICTION [None]
